FAERS Safety Report 4771320-6 (Version None)
Quarter: 2005Q3

REPORT INFORMATION
  Report Type: 
  Country: None (occurrence: None)
  Receive Date: 20050915
  Receipt Date: 20050719
  Transmission Date: 20060218
  Serious: No
  Sender: FDA-Public Use
  Company Number: 2005BI013588

PATIENT
  Age: 82 Year
  Sex: Male
  Weight: 89.3586 kg

DRUGS (9)
  1. ZEVALIN [Suspect]
     Indication: NON-HODGKIN'S LYMPHOMA
     Dosage: SEE IMAGE
     Route: 042
     Dates: start: 20050615, end: 20050615
  2. ZEVALIN [Suspect]
     Indication: NON-HODGKIN'S LYMPHOMA
     Dosage: SEE IMAGE
     Route: 042
     Dates: start: 20050615, end: 20050615
  3. ZEVALIN [Suspect]
     Indication: NON-HODGKIN'S LYMPHOMA
     Dosage: SEE IMAGE
     Route: 042
     Dates: start: 20050622, end: 20050622
  4. ZEVALIN [Suspect]
     Indication: NON-HODGKIN'S LYMPHOMA
     Dosage: SEE IMAGE
     Route: 042
     Dates: start: 20050622, end: 20050622
  5. ALLOPURINOL [Concomitant]
  6. PREDNISONE [Concomitant]
  7. ALBUTEROL [Concomitant]
  8. SPIRIVA [Concomitant]
  9. EQUATE [Concomitant]

REACTIONS (6)
  - BLISTER [None]
  - BURNING SENSATION [None]
  - CAUSTIC INJURY [None]
  - INJECTION SITE ERYTHEMA [None]
  - SKIN EXFOLIATION [None]
  - WOUND [None]
